FAERS Safety Report 10183400 (Version 1)
Quarter: 2014Q2

REPORT INFORMATION
  Report Type: Spontaneous
  Country: US (occurrence: US)
  Receive Date: 20140520
  Receipt Date: 20140520
  Transmission Date: 20141212
  Serious: Yes (Other)
  Sender: FDA-Public Use
  Company Number: US-PFIZER INC-2014135308

PATIENT
  Age: 70 Year
  Sex: Female
  Weight: 49 kg

DRUGS (2)
  1. PREMARIN [Suspect]
     Indication: VULVOVAGINAL DRYNESS
     Dosage: 1 G, 3X/WEEK
     Route: 067
  2. PREMARIN [Suspect]
     Dosage: 1 G, 3X/WEEK
     Route: 067
     Dates: end: 2003

REACTIONS (1)
  - Breast cancer female [Recovered/Resolved]
